FAERS Safety Report 5878448-8 (Version None)
Quarter: 2008Q3

REPORT INFORMATION
  Report Type: 
  Country: None (occurrence: None)
  Receive Date: 20080911
  Receipt Date: 20070925
  Transmission Date: 20090109
  Serious: No
  Sender: FDA-Public Use
  Company Number: US-AMGEN-KDL244925

PATIENT
  Sex: Male

DRUGS (4)
  1. NEUPOGEN [Suspect]
     Indication: HEPATITIS C
     Dates: start: 20070101
  2. INTERFERON [Concomitant]
  3. LITHIUM CARBONATE [Concomitant]
  4. EFFEXOR [Concomitant]

REACTIONS (2)
  - FEELING ABNORMAL [None]
  - HEADACHE [None]
